FAERS Safety Report 5900999-8 (Version None)
Quarter: 2008Q3

REPORT INFORMATION
  Report Type: 
  Country: None (occurrence: None)
  Receive Date: 20080829
  Receipt Date: 20080716
  Transmission Date: 20090109
  Serious: No
  Sender: FDA-Public Use
  Company Number: PHEH2008US05984

PATIENT
  Age: 69 Year
  Sex: Male

DRUGS (1)
  1. EXJADE [Suspect]
     Indication: IRON OVERLOAD
     Dosage: 1500 MG, DAILY, ORAL
     Route: 048
     Dates: start: 20080604, end: 20080702

REACTIONS (4)
  - ANOREXIA [None]
  - FATIGUE [None]
  - HYPOTENSION [None]
  - SOMNOLENCE [None]
